FAERS Safety Report 7357309-1 (Version None)
Quarter: 2011Q1

REPORT INFORMATION
  Report Type: 
  Country: None (occurrence: None)
  Receive Date: 20110317
  Receipt Date: 20110303
  Transmission Date: 20110831
  Serious: Yes (Hospitalization)
  Sender: FDA-Public Use
  Company Number: GB-SANOFI-AVENTIS-2011SA013295

PATIENT
  Sex: Female

DRUGS (3)
  1. METRONIDAZOLE [Suspect]
  2. VANCOMYCIN [Suspect]
  3. TEICOPLANIN SODIUM [Suspect]

REACTIONS (2)
  - SEPTIC SHOCK [None]
  - DRUG INEFFECTIVE [None]
